FAERS Safety Report 4574769-X (Version None)
Quarter: 2005Q1

REPORT INFORMATION
  Report Type: 
  Country: None (occurrence: None)
  Receive Date: 20050208
  Receipt Date: 20040618
  Transmission Date: 20050727
  Serious: No
  Sender: FDA-Public Use
  Company Number: US-GLAXOSMITHKLINE-A0515227A

PATIENT
  Age: 28 Year
  Sex: Male

DRUGS (4)
  1. PAXIL [Suspect]
     Indication: DEPRESSION
     Route: 065
  2. LITHIUM [Concomitant]
  3. ZYPREXA [Concomitant]
  4. WELLBUTRIN [Concomitant]

REACTIONS (1)
  - LIBIDO DECREASED [None]
